FAERS Safety Report 8819207 (Version 1)
Quarter: 2012Q4

REPORT INFORMATION
  Report Type: 
  Country: US (occurrence: US)
  Receive Date: 20121001
  Receipt Date: 20121001
  Transmission Date: 20130627
  Serious: No
  Sender: FDA-Public Use
  Company Number: US-PFIZER INC-2012238852

PATIENT
  Age: 52 Year

DRUGS (3)
  1. KETOROLAC TROMETHAMINE [Suspect]
     Dosage: UNK
  2. NEOMYCIN SULFATE [Suspect]
     Dosage: UNK
  3. POLYMYXIN B SULFATE [Suspect]
     Dosage: UNK

REACTIONS (3)
  - Urticaria [Unknown]
  - Swelling [Unknown]
  - Drug hypersensitivity [Unknown]
